FAERS Safety Report 23723176 (Version 2)
Quarter: 2024Q2

REPORT INFORMATION
  Report Type: Spontaneous
  Country: JP (occurrence: JP)
  Receive Date: 20240409
  Receipt Date: 20240418
  Transmission Date: 20240716
  Serious: Yes (Other)
  Sender: FDA-Public Use
  Company Number: JP-ELI_LILLY_AND_COMPANY-JP202403017462

PATIENT
  Age: 72 Year
  Sex: Male
  Weight: 58 kg

DRUGS (22)
  1. INSULIN HUMAN [Suspect]
     Active Substance: INSULIN HUMAN
     Indication: Steroid diabetes
     Dosage: 4 INTERNATIONAL UNIT, DAILY
     Route: 058
     Dates: start: 20240131, end: 20240201
  2. INSULIN HUMAN [Suspect]
     Active Substance: INSULIN HUMAN
     Dosage: 6 INTERNATIONAL UNIT
     Route: 058
     Dates: start: 20240202, end: 20240205
  3. INSULIN HUMAN [Suspect]
     Active Substance: INSULIN HUMAN
     Dosage: 4 INTERNATIONAL UNIT
     Route: 058
     Dates: start: 20240206, end: 20240208
  4. INSULIN HUMAN [Suspect]
     Active Substance: INSULIN HUMAN
     Indication: Steroid diabetes
     Dosage: UNK
     Route: 065
     Dates: start: 20240130
  5. SULFAMETHOXAZOLE\TRIMETHOPRIM [Suspect]
     Active Substance: SULFAMETHOXAZOLE\TRIMETHOPRIM
     Indication: Infection prophylaxis
     Dosage: 1 G, 2/W
     Route: 048
     Dates: start: 20240201, end: 20240205
  6. AMLODIPINE [Concomitant]
     Active Substance: AMLODIPINE BESYLATE
  7. VALSARTAN [Concomitant]
     Active Substance: VALSARTAN
  8. IPRAGLIFLOZIN L-PROLINE [Concomitant]
     Active Substance: IPRAGLIFLOZIN L-PROLINE
  9. SITAGLIPTIN [Concomitant]
     Active Substance: SITAGLIPTIN
  10. URSODIOL [Concomitant]
     Active Substance: URSODIOL
  11. REBAMIPIDE [Concomitant]
     Active Substance: REBAMIPIDE
  12. GLYCYRON 2GO [Concomitant]
  13. DOXAZOSIN [Concomitant]
     Active Substance: DOXAZOSIN MESYLATE
  14. METGLUCO [Concomitant]
     Active Substance: METFORMIN HYDROCHLORIDE
  15. VONOPRAZAN FUMARATE [Concomitant]
     Active Substance: VONOPRAZAN FUMARATE
  16. AZOSEMIDE [Concomitant]
     Active Substance: AZOSEMIDE
  17. SOLU-MEDROL [Concomitant]
     Active Substance: METHYLPREDNISOLONE SODIUM SUCCINATE
  18. ISOTONIC SODIUM CHLORIDE SOLUTION [Concomitant]
     Active Substance: SODIUM CHLORIDE
  19. PREDNISOLONE ACETATE [Concomitant]
     Active Substance: PREDNISOLONE ACETATE
  20. AZITHROMYCIN DIHYDRATE [Concomitant]
     Active Substance: AZITHROMYCIN DIHYDRATE
  21. PIPERACILLIN SODIUM\TAZOBACTAM SODIUM [Concomitant]
     Active Substance: PIPERACILLIN SODIUM\TAZOBACTAM SODIUM
  22. LASIX [Concomitant]
     Active Substance: FUROSEMIDE

REACTIONS (2)
  - Pruritus [Recovered/Resolved]
  - Rash [Recovering/Resolving]

NARRATIVE: CASE EVENT DATE: 20240207
